FAERS Safety Report 9371105 (Version 1)
Quarter: 2013Q2

REPORT INFORMATION
  Report Type: Spontaneous
  Country: US (occurrence: None)
  Receive Date: 20130626
  Receipt Date: 20130626
  Transmission Date: 20140414
  Serious: Yes (Other)
  Sender: FDA-Public Use
  Company Number: None

PATIENT
  Sex: Male
  Weight: 44.45 kg

DRUGS (1)
  1. RISPERDAL [Suspect]
     Indication: EMOTIONAL DISORDER
     Dosage: .5 2X^S DAY
     Dates: start: 2004, end: 2013

REACTIONS (1)
  - Gynaecomastia [None]
